FAERS Safety Report 4571796-3 (Version None)
Quarter: 2005Q1

REPORT INFORMATION
  Report Type: 
  Country: None (occurrence: None)
  Receive Date: 20050207
  Receipt Date: 20050128
  Transmission Date: 20050727
  Serious: Yes (Disabling, Other)
  Sender: FDA-Public Use
  Company Number: US-MERCK-0501USA04386

PATIENT
  Age: 72 Year
  Sex: Female

DRUGS (5)
  1. ZOCOR [Suspect]
     Indication: BLOOD CHOLESTEROL INCREASED
     Route: 048
     Dates: start: 20030901, end: 20040101
  2. ZOCOR [Suspect]
     Route: 048
     Dates: start: 20040101, end: 20040101
  3. PLAVIX [Concomitant]
     Route: 065
  4. ASPIRIN [Concomitant]
     Route: 065
  5. TOPROL-XL [Concomitant]
     Route: 065

REACTIONS (4)
  - MEDICATION ERROR [None]
  - MYALGIA [None]
  - MYOCARDIAL INFARCTION [None]
  - PAIN IN EXTREMITY [None]
